FAERS Safety Report 17438973 (Version 1)
Quarter: 2020Q1

REPORT INFORMATION
  Report Type: Spontaneous
  Country: GB (occurrence: GB)
  Receive Date: 20200220
  Receipt Date: 20200220
  Transmission Date: 20200409
  Serious: Yes (Other)
  Sender: FDA-Public Use
  Company Number: GB-TEVA-2020-GB-1188872

PATIENT
  Age: 70 Year
  Sex: Male
  Weight: 68 kg

DRUGS (7)
  1. SIMVASTATIN. [Concomitant]
     Active Substance: SIMVASTATIN
     Indication: BLOOD CHOLESTEROL INCREASED
     Dosage: AT NIGHT. 1 DOSAGE FORMS
     Dates: start: 20191107
  2. SIMVADOR [Concomitant]
     Active Substance: SIMVASTATIN
     Indication: BLOOD CHOLESTEROL INCREASED
     Dosage: AT NIGHT. 1 DOSAGE FORMS
     Dates: start: 20190320, end: 20191107
  3. AMOXICILLIN. [Suspect]
     Active Substance: AMOXICILLIN
     Dosage: 1500 MG
     Dates: start: 20200115, end: 20200120
  4. PREDNISOLONE. [Concomitant]
     Active Substance: PREDNISOLONE
     Dosage: 6 DOSAGE FORMS
     Dates: start: 20200130
  5. MOMETASONE [Concomitant]
     Active Substance: MOMETASONE
     Dosage: 4 DOSAGE FORMS
     Route: 055
     Dates: start: 20190813
  6. DOXYCYCLINE. [Concomitant]
     Active Substance: DOXYCYCLINE
     Dates: start: 20200131
  7. DOXYCYCLINE. [Concomitant]
     Active Substance: DOXYCYCLINE
     Dosage: AND THEN ONE CAPS DAILY FOR A FURTHER SIX DAYS. 2 DOSAGE FORMS
     Dates: start: 20200130, end: 20200130

REACTIONS (3)
  - Pruritus [Recovered/Resolved]
  - Vomiting [Recovered/Resolved]
  - Rash [Recovered/Resolved]

NARRATIVE: CASE EVENT DATE: 20200130
